FAERS Safety Report 9138465 (Version 1)
Quarter: 2013Q1

REPORT INFORMATION
  Report Type: Spontaneous
  Country: GR (occurrence: None)
  Receive Date: 20130227
  Receipt Date: 20130227
  Transmission Date: 20140127
  Serious: Yes (Death, Hospitalization)
  Sender: FDA-Public Use
  Company Number: SYM-2013-00901

PATIENT
  Age: 39 Year
  Sex: Female

DRUGS (5)
  1. FLUOROURACIL [Suspect]
     Indication: BREAST CANCER
  2. EPIRUBICIN [Suspect]
     Indication: BREAST CANCER
  3. CYCLOPHOSPHAMIDE [Suspect]
     Indication: BREAST CANCER
  4. TAXOTERE [Suspect]
     Indication: BREAST CANCER
  5. BEVACIZUMAB [Suspect]
     Indication: BREAST CANCER

REACTIONS (7)
  - Cholecystitis acute [None]
  - Hepatic steatosis [None]
  - Portal vein thrombosis [None]
  - Hepatic failure [None]
  - Portal hypertension [None]
  - Hepatic cyst [None]
  - Ascites [None]
